FAERS Safety Report 10066272 (Version 1)
Quarter: 2014Q2

REPORT INFORMATION
  Report Type: Spontaneous
  Country: SE (occurrence: SE)
  Receive Date: 20140408
  Receipt Date: 20140408
  Transmission Date: 20141212
  Serious: Yes (Other)
  Sender: FDA-Public Use
  Company Number: PHHY2014SE041493

PATIENT
  Sex: 0

DRUGS (1)
  1. IMATINIB [Suspect]

REACTIONS (1)
  - Lung disorder [Unknown]
